FAERS Safety Report 11598438 (Version 2)
Quarter: 2016Q4

REPORT INFORMATION
  Report Type: Report from Study
  Country: US (occurrence: US)
  Receive Date: 20151006
  Receipt Date: 20161101
  Transmission Date: 20170206
  Serious: Yes (Hospitalization)
  Sender: FDA-Public Use
  Company Number: US-UCBSA-2015030960

PATIENT
  Age: 31 Year
  Sex: Female

DRUGS (2)
  1. LACOSAMIDE. [Suspect]
     Active Substance: LACOSAMIDE
     Indication: SEIZURE
     Dosage: 200 MG/1 DAY
     Dates: start: 201503
  2. LACOSAMIDE. [Suspect]
     Active Substance: LACOSAMIDE
     Dosage: TABLET IN THE MORNING AND 1 + 1/2 TABLETS AT NIGHT

REACTIONS (3)
  - Pneumonia [Unknown]
  - Overdose [Unknown]
  - Off label use [Unknown]

NARRATIVE: CASE EVENT DATE: 201504
